FAERS Safety Report 25789256 (Version 1)
Quarter: 2025Q3

REPORT INFORMATION
  Report Type: Other
  Country: GB (occurrence: GB)
  Receive Date: 20250911
  Receipt Date: 20250911
  Transmission Date: 20251020
  Serious: Yes (Other)
  Sender: LUPIN
  Company Number: GB-LUPIN PHARMACEUTICALS INC.-2025-08037

PATIENT
  Age: 38 Year
  Sex: Female
  Weight: 93 kg

DRUGS (1)
  1. SERTRALINE [Suspect]
     Active Substance: SERTRALINE HYDROCHLORIDE
     Indication: Product used for unknown indication
     Route: 065

REACTIONS (2)
  - Medication error [Unknown]
  - Suicide attempt [Recovered/Resolved with Sequelae]
